FAERS Safety Report 8254040-5 (Version None)
Quarter: 2012Q2

REPORT INFORMATION
  Report Type: 
  Country: None (occurrence: None)
  Receive Date: 20120402
  Receipt Date: 20120319
  Transmission Date: 20120825
  Serious: No
  Sender: FDA-Public Use
  Company Number: US-AMGEN-USASP2012017626

PATIENT
  Sex: Female

DRUGS (1)
  1. ENBREL [Suspect]
     Indication: SJOGREN'S SYNDROME
     Dosage: 50 MG, QWK
     Dates: start: 20110609

REACTIONS (4)
  - INJECTION SITE PAIN [None]
  - INJECTION SITE RASH [None]
  - INJECTION SITE REACTION [None]
  - INJECTION SITE DISCOLOURATION [None]
